FAERS Safety Report 9734401 (Version 2)
Quarter: 2013Q4

REPORT INFORMATION
  Report Type: Spontaneous
  Country: US (occurrence: US)
  Receive Date: 20131206
  Receipt Date: 20131219
  Transmission Date: 20140711
  Serious: Yes (Other)
  Sender: FDA-Public Use
  Company Number: US-BEH-2013039205

PATIENT
  Age: 64 Year
  Sex: Female

DRUGS (1)
  1. HIZENTRA [Suspect]
     Indication: IMMUNODEFICIENCY COMMON VARIABLE
     Dosage: STARTED TWO YRS AGO;ALWAYS USES F1200 TUBING;NEEDLE27GAUGE;9MM;NO CHANGE W/ INFUSION RATE/ TECHNIQUE
     Route: 058
     Dates: start: 20131117, end: 20131117

REACTIONS (8)
  - Infusion site cellulitis [Unknown]
  - Infusion site mass [Unknown]
  - Infusion site bruising [Unknown]
  - Infusion site swelling [Unknown]
  - Infusion site pain [Unknown]
  - Infusion site erythema [Unknown]
  - Infusion site warmth [Unknown]
  - Infusion site warmth [Unknown]
